FAERS Safety Report 14322396 (Version 1)
Quarter: 2017Q4

REPORT INFORMATION
  Report Type: Spontaneous
  Country: ES (occurrence: ES)
  Receive Date: 20171225
  Receipt Date: 20171225
  Transmission Date: 20180321
  Serious: Yes (Hospitalization)
  Sender: FDA-Public Use
  Company Number: PHHY2017ES191357

PATIENT
  Age: 75 Year
  Sex: Female

DRUGS (2)
  1. METOTREXATO HEXAL [Suspect]
     Active Substance: METHOTREXATE
     Indication: RHEUMATOID ARTHRITIS
     Dosage: 15 MG, QD
     Route: 065
     Dates: start: 2010, end: 20170911
  2. KINERET [Suspect]
     Active Substance: ANAKINRA
     Indication: RHEUMATOID ARTHRITIS
     Dosage: 100 MG, QD
     Route: 048
     Dates: start: 20170522, end: 20170911

REACTIONS (2)
  - Staphylococcal infection [Unknown]
  - Lung infection [Unknown]

NARRATIVE: CASE EVENT DATE: 20170911
